FAERS Safety Report 10486415 (Version 1)
Quarter: 2014Q3

REPORT INFORMATION
  Report Type: Spontaneous
  Country: US (occurrence: None)
  Receive Date: 20140908
  Receipt Date: 20140908
  Transmission Date: 20150326
  Serious: Yes (Hospitalization, Other)
  Sender: FDA-Public Use
  Company Number: 411937

PATIENT
  Sex: Female

DRUGS (1)
  1. VICTOZA [Suspect]
     Active Substance: LIRAGLUTIDE
     Indication: TYPE 2 DIABETES MELLITUS
     Route: 058
     Dates: start: 2014, end: 201405

REACTIONS (4)
  - Renal failure [None]
  - Drug dose omission [None]
  - Glycosylated haemoglobin increased [None]
  - Blood glucose increased [None]

NARRATIVE: CASE EVENT DATE: 201405
